FAERS Safety Report 15256750 (Version 1)
Quarter: 2018Q3

REPORT INFORMATION
  Report Type: Spontaneous
  Country: US (occurrence: US)
  Receive Date: 20180718
  Receipt Date: 20180718
  Transmission Date: 20181010
  Serious: No
  Sender: FDA-Public Use
  Company Number: None

PATIENT
  Age: 25 Year
  Sex: Male

DRUGS (1)
  1. MAVYRET [Suspect]
     Active Substance: GLECAPREVIR\PIBRENTASVIR
     Dates: start: 20180528, end: 20180718

REACTIONS (4)
  - Muscle spasms [None]
  - Nausea [None]
  - Localised infection [None]
  - Staphylococcal infection [None]

NARRATIVE: CASE EVENT DATE: 20180628
